FAERS Safety Report 9163374 (Version 1)
Quarter: 2012Q4

REPORT INFORMATION
  Report Type: 
  Country: ES (occurrence: ES)
  Receive Date: 20121212
  Receipt Date: 20121212
  Transmission Date: 20130627
  Serious: Yes (Hospitalization)
  Sender: FDA-Public Use
  Company Number: ES-PAR PHARMACEUTICAL, INC-2012SCPR004751

PATIENT

DRUGS (3)
  1. TRETINOIN [Suspect]
     Indication: ACUTE PROMYELOCYTIC LEUKAEMIA
     Dosage: 20 mg, bid (25 mg/m^2/day)
     Route: 048
  2. TRETINOIN [Suspect]
     Dosage: (25 mg/m2/day) for 15 days every
     Route: 048
  3. IDARUBICIN [Concomitant]
     Indication: ACUTE PROMYELOCYTIC LEUKAEMIA
     Dosage: 12 mg/m2, / day (18 mg) on day 2, 4, 6, 8
     Route: 040

REACTIONS (4)
  - Cranial nerve palsies multiple [Recovered/Resolved]
  - Febrile neutropenia [Recovered/Resolved]
  - Stomatitis [Unknown]
  - Benign intracranial hypertension [Recovered/Resolved]
